FAERS Safety Report 12757977 (Version 2)
Quarter: 2016Q4

REPORT INFORMATION
  Report Type: Spontaneous
  Country: US (occurrence: US)
  Receive Date: 20160919
  Receipt Date: 20161010
  Transmission Date: 20170207
  Serious: Yes (Other)
  Sender: FDA-Public Use
  Company Number: US-TEVA-693157USA

PATIENT
  Age: 68 Year
  Sex: Male

DRUGS (5)
  1. VITAMINS [Concomitant]
     Active Substance: VITAMINS
  2. MODAFINIL. [Suspect]
     Active Substance: MODAFINIL
     Indication: SOMNOLENCE
     Route: 065
     Dates: start: 20160824
  3. CAFFEINE. [Concomitant]
     Active Substance: CAFFEINE
  4. METAMUCIL [Concomitant]
     Active Substance: PLANTAGO SEED
  5. MODAFINIL. [Suspect]
     Active Substance: MODAFINIL
     Route: 065
     Dates: start: 20160906

REACTIONS (3)
  - Narcolepsy [Unknown]
  - Sluggishness [Unknown]
  - Somnolence [Unknown]
